FAERS Safety Report 9898019 (Version 2)
Quarter: 2014Q2

REPORT INFORMATION
  Report Type: Spontaneous
  Country: US (occurrence: US)
  Receive Date: 20140214
  Receipt Date: 20140422
  Transmission Date: 20141212
  Serious: Yes (Life-Threatening)
  Sender: FDA-Public Use
  Company Number: US-PFIZER INC-2014038368

PATIENT
  Age: 45 Year
  Sex: Female

DRUGS (2)
  1. SUMATRIPTAN SUCCINATE [Suspect]
     Indication: MIGRAINE WITHOUT AURA
     Dosage: UP TO TEN 6MG DOSES PER WEEK
     Route: 058
  2. SUMATRIPTAN SUCCINATE [Suspect]
     Indication: HEADACHE

REACTIONS (4)
  - Overdose [Recovered/Resolved]
  - Intestinal ischaemia [Not Recovered/Not Resolved]
  - Gastrointestinal necrosis [Unknown]
  - Hypotension [Unknown]
